FAERS Safety Report 8240510-2 (Version None)
Quarter: 2012Q1

REPORT INFORMATION
  Report Type: 
  Country: None (occurrence: None)
  Receive Date: 20120314
  Receipt Date: 20111203
  Transmission Date: 20120608
  Serious: No
  Sender: FDA-Public Use
  Company Number: HRA-CDB20110119

PATIENT
  Age: 27 Year
  Sex: Female
  Weight: 54.42 kg

DRUGS (2)
  1. ELLA [Suspect]
     Indication: CONTRACEPTION
     Dosage: 1 DOSAGE FORMS (1 DOSAGE FORMS, 1 IN 1 D), ORAL
     Route: 048
     Dates: start: 20111201, end: 20111201
  2. PLAN B [Suspect]
     Indication: CONTRACEPTION
     Dosage: 1 DOSAGE FORMS (1 DOSAGE FORMS, 1 IN 1 D), ORAL
     Route: 048
     Dates: start: 20111201, end: 20111201

REACTIONS (4)
  - HYPOMENORRHOEA [None]
  - DRUG PRESCRIBING ERROR [None]
  - DRUG INTERACTION [None]
  - MENSTRUAL DISORDER [None]
